FAERS Safety Report 18101692 (Version 1)
Quarter: 2020Q3

REPORT INFORMATION
  Report Type: Spontaneous
  Country: LB (occurrence: LB)
  Receive Date: 20200802
  Receipt Date: 20200802
  Transmission Date: 20201103
  Serious: Yes (Hospitalization, Other)
  Sender: FDA-Public Use
  Company Number: LB-LUPIN PHARMACEUTICALS INC.-2020-04007

PATIENT
  Age: 67 Year
  Sex: Male

DRUGS (4)
  1. QUETIAPINE FUMARATE EXTENDED?RELEASE TABLETS [Suspect]
     Active Substance: QUETIAPINE FUMARATE
     Indication: DEPRESSION SUICIDAL
     Dosage: EXTENDED?RELEASE
     Route: 065
  2. MIRTAZAPINE. [Suspect]
     Active Substance: MIRTAZAPINE
     Indication: DEPRESSION SUICIDAL
     Dosage: 30 MILLIGRAM, QD
     Route: 065
  3. ALPRAZOLAM. [Suspect]
     Active Substance: ALPRAZOLAM
     Indication: DEPRESSION SUICIDAL
     Dosage: UNK
     Route: 065
  4. SERTRALINE [Suspect]
     Active Substance: SERTRALINE HYDROCHLORIDE
     Indication: DEPRESSION SUICIDAL
     Dosage: 200 MILLIGRAM, QD
     Route: 065

REACTIONS (4)
  - Drug abuse [Unknown]
  - Drug ineffective [Unknown]
  - Suicide attempt [Unknown]
  - Intentional overdose [Unknown]
